FAERS Safety Report 5906665-7 (Version None)
Quarter: 2008Q3

REPORT INFORMATION
  Report Type: 
  Country: None (occurrence: None)
  Receive Date: 20080930
  Receipt Date: 20080911
  Transmission Date: 20090109
  Serious: Yes (Death)
  Sender: FDA-Public Use
  Company Number: 2008S1016666

PATIENT
  Age: 39 Year
  Sex: Male

DRUGS (8)
  1. MIRTAZAPINE [Suspect]
     Dosage: 15 MG; DAILY; ORAL
     Route: 048
  2. PERPHENAZINE [Suspect]
     Indication: DEMENTIA
     Dosage: 4 MG; 3 TIMES A DAY;  ORAL
     Route: 048
     Dates: end: 20080814
  3. DIAZEPAM [Concomitant]
  4. IBUPROFEN [Concomitant]
  5. LORAZEPAM [Concomitant]
  6. ACETAMINOPHEN [Concomitant]
  7. VALPROATE SODIUM [Concomitant]
  8. ZOLPIDEM (ZOLPIDEM) [Concomitant]

REACTIONS (1)
  - CARDIAC ARREST [None]
